FAERS Safety Report 21732753 (Version 1)
Quarter: 2022Q4

REPORT INFORMATION
  Report Type: Spontaneous
  Country: US (occurrence: US)
  Receive Date: 20221215
  Receipt Date: 20221215
  Transmission Date: 20230113
  Serious: No
  Sender: FDA-Public Use
  Company Number: US-LEO Pharma-344846

PATIENT
  Sex: Female

DRUGS (29)
  1. ENALAPRIL [Concomitant]
     Active Substance: ENALAPRIL
     Indication: Product used for unknown indication
  2. DUPIXENT [Suspect]
     Active Substance: DUPILUMAB
     Indication: Product used for unknown indication
  3. ADBRY [Suspect]
     Active Substance: TRALOKINUMAB-LDRM
     Indication: Dermatitis atopic
     Dosage: 4 INJECTIONS FOR THE INITIAL DOSE
     Route: 058
     Dates: start: 20220810
  4. ADBRY [Suspect]
     Active Substance: TRALOKINUMAB-LDRM
     Indication: Dermatitis atopic
     Dosage: 4 INJECTIONS FOR THE INITIAL DOSE
     Route: 058
     Dates: start: 20220810
  5. ADBRY [Suspect]
     Active Substance: TRALOKINUMAB-LDRM
     Indication: Dermatitis atopic
     Dosage: 4 INJECTIONS FOR THE INITIAL DOSE
     Route: 058
     Dates: start: 20220810
  6. ADBRY [Suspect]
     Active Substance: TRALOKINUMAB-LDRM
     Indication: Dermatitis atopic
     Dosage: 2 INJECTIONS EVERY TWO WEEKS
     Route: 058
  7. ADBRY [Suspect]
     Active Substance: TRALOKINUMAB-LDRM
     Indication: Dermatitis atopic
     Dosage: 2 INJECTIONS EVERY TWO WEEKS
     Route: 058
  8. ADBRY [Suspect]
     Active Substance: TRALOKINUMAB-LDRM
     Indication: Dermatitis atopic
     Dosage: 2 INJECTIONS EVERY TWO WEEKS
     Route: 058
  9. ADBRY [Suspect]
     Active Substance: TRALOKINUMAB-LDRM
     Indication: Dermatitis atopic
     Dosage: MAINTENANCE DOSE X 2
     Route: 058
  10. ADBRY [Suspect]
     Active Substance: TRALOKINUMAB-LDRM
     Indication: Dermatitis atopic
     Dosage: MAINTENANCE DOSE X 2
     Route: 058
  11. ADBRY [Suspect]
     Active Substance: TRALOKINUMAB-LDRM
     Indication: Dermatitis atopic
     Dosage: MAINTENANCE DOSE X 2
     Route: 058
  12. ADBRY [Suspect]
     Active Substance: TRALOKINUMAB-LDRM
     Indication: Dermatitis atopic
     Dosage: 4 INJECTIONS FOR THE INITIAL DOSE
     Route: 058
     Dates: start: 20220810
  13. ADBRY [Suspect]
     Active Substance: TRALOKINUMAB-LDRM
     Indication: Dermatitis atopic
     Dosage: 4 INJECTIONS FOR THE INITIAL DOSE
     Route: 058
     Dates: start: 20220810
  14. ADBRY [Suspect]
     Active Substance: TRALOKINUMAB-LDRM
     Indication: Dermatitis atopic
     Dosage: 4 INJECTIONS FOR THE INITIAL DOSE
     Route: 058
     Dates: start: 20220810
  15. ADBRY [Suspect]
     Active Substance: TRALOKINUMAB-LDRM
     Indication: Dermatitis atopic
     Dosage: 2 INJECTIONS EVERY TWO WEEKS
     Route: 058
  16. ADBRY [Suspect]
     Active Substance: TRALOKINUMAB-LDRM
     Indication: Dermatitis atopic
     Dosage: 2 INJECTIONS EVERY TWO WEEKS
     Route: 058
  17. ADBRY [Suspect]
     Active Substance: TRALOKINUMAB-LDRM
     Indication: Dermatitis atopic
     Dosage: 2 INJECTIONS EVERY TWO WEEKS
     Route: 058
  18. ADBRY [Suspect]
     Active Substance: TRALOKINUMAB-LDRM
     Indication: Dermatitis atopic
     Dosage: MAINTENANCE DOSE X 2
     Route: 058
  19. ADBRY [Suspect]
     Active Substance: TRALOKINUMAB-LDRM
     Indication: Dermatitis atopic
     Dosage: MAINTENANCE DOSE X 2
     Route: 058
  20. ADBRY [Suspect]
     Active Substance: TRALOKINUMAB-LDRM
     Indication: Dermatitis atopic
     Dosage: MAINTENANCE DOSE X 2
     Route: 058
  21. ADBRY [Suspect]
     Active Substance: TRALOKINUMAB-LDRM
     Indication: Dermatitis atopic
     Dosage: 4 INJECTIONS FOR THE INITIAL DOSE
     Route: 058
     Dates: start: 20220810
  22. ADBRY [Suspect]
     Active Substance: TRALOKINUMAB-LDRM
     Indication: Dermatitis atopic
     Dosage: 4 INJECTIONS FOR THE INITIAL DOSE
     Route: 058
     Dates: start: 20220810
  23. ADBRY [Suspect]
     Active Substance: TRALOKINUMAB-LDRM
     Indication: Dermatitis atopic
     Dosage: 4 INJECTIONS FOR THE INITIAL DOSE
     Route: 058
     Dates: start: 20220810
  24. ADBRY [Suspect]
     Active Substance: TRALOKINUMAB-LDRM
     Indication: Dermatitis atopic
     Dosage: 2 INJECTIONS EVERY TWO WEEKS
     Route: 058
  25. ADBRY [Suspect]
     Active Substance: TRALOKINUMAB-LDRM
     Indication: Dermatitis atopic
     Dosage: 2 INJECTIONS EVERY TWO WEEKS
     Route: 058
  26. ADBRY [Suspect]
     Active Substance: TRALOKINUMAB-LDRM
     Indication: Dermatitis atopic
     Dosage: 2 INJECTIONS EVERY TWO WEEKS
     Route: 058
  27. ADBRY [Suspect]
     Active Substance: TRALOKINUMAB-LDRM
     Indication: Dermatitis atopic
     Dosage: MAINTENANCE DOSE X 2
     Route: 058
  28. ADBRY [Suspect]
     Active Substance: TRALOKINUMAB-LDRM
     Indication: Dermatitis atopic
     Dosage: MAINTENANCE DOSE X 2
     Route: 058
  29. ADBRY [Suspect]
     Active Substance: TRALOKINUMAB-LDRM
     Indication: Dermatitis atopic
     Dosage: MAINTENANCE DOSE X 2
     Route: 058

REACTIONS (8)
  - Erythema [Recovered/Resolved]
  - Rash [Recovered/Resolved]
  - Eye pruritus [Recovered/Resolved]
  - Dry skin [Recovered/Resolved]
  - Dry eye [Recovered/Resolved]
  - Eye swelling [Recovered/Resolved]
  - Ocular hyperaemia [Recovered/Resolved]
  - Erythema of eyelid [Recovered/Resolved]
